FAERS Safety Report 8471836-5 (Version None)
Quarter: 2012Q2

REPORT INFORMATION
  Report Type: 
  Country: None (occurrence: None)
  Receive Date: 20120627
  Receipt Date: 20120611
  Transmission Date: 20120825
  Serious: Yes (Other)
  Sender: FDA-Public Use
  Company Number: US-PFIZER INC-2012105320

PATIENT
  Sex: Female

DRUGS (2)
  1. XANAX [Suspect]
     Dosage: 2 MG, 3X/DAY
  2. XANAX [Suspect]
     Dosage: UNK

REACTIONS (5)
  - ANXIETY [None]
  - PANIC ATTACK [None]
  - DRUG TOLERANCE [None]
  - DEPRESSION [None]
  - ROAD TRAFFIC ACCIDENT [None]
